FAERS Safety Report 24644038 (Version 1)
Quarter: 2024Q4

REPORT INFORMATION
  Report Type: Spontaneous
  Country: CN (occurrence: CN)
  Receive Date: 20241120
  Receipt Date: 20241120
  Transmission Date: 20250115
  Serious: Yes (Life-Threatening, Hospitalization, Other)
  Sender: PURDUE
  Company Number: CN-NAPPMUNDI-GBR-2024-0121384

PATIENT
  Age: 37 Year
  Sex: Female
  Weight: 65 kg

DRUGS (14)
  1. MORPHINE SULFATE [Interacting]
     Active Substance: MORPHINE SULFATE
     Indication: Spinal anaesthesia
     Dosage: 70  MICROGRAM
     Route: 037
     Dates: start: 20230704
  2. MORPHINE SULFATE [Interacting]
     Active Substance: MORPHINE SULFATE
     Indication: Spinal anaesthesia
     Dosage: 70 MICROGRAM
     Route: 037
     Dates: start: 20230704
  3. PROPOFOL [Interacting]
     Active Substance: PROPOFOL
     Indication: Anaesthesia
     Dosage: 8 MILLILITER/HR
     Route: 065
     Dates: start: 20230704
  4. SUFENTANIL [Interacting]
     Active Substance: SUFENTANIL
     Indication: Anaesthesia
     Dosage: 2 MICROGRAM
     Route: 042
     Dates: start: 20230704
  5. ROPIVACAINE [Interacting]
     Active Substance: ROPIVACAINE
     Indication: Spinal anaesthesia
     Dosage: 40 MILLILITER
     Route: 065
     Dates: start: 20230704
  6. BUPIVACAINE [Interacting]
     Active Substance: BUPIVACAINE
     Indication: Spinal anaesthesia
     Dosage: 10 MILLIGRAM
     Route: 037
     Dates: start: 20230704
  7. NALBUPHINE [Interacting]
     Active Substance: NALBUPHINE
     Indication: Spinal anaesthesia
     Dosage: 70 MCG
     Route: 037
     Dates: start: 20230704
  8. FUROSEMIDE [Concomitant]
     Active Substance: FUROSEMIDE
     Indication: Pulmonary hypertension
     Dosage: 20 MILLIGRAM
     Route: 065
     Dates: start: 20230704
  9. OXYGEN [Concomitant]
     Active Substance: OXYGEN
     Indication: Product used for unknown indication
     Dosage: 4 LITER
     Route: 065
     Dates: start: 20230704
  10. OXYTOCIN [Concomitant]
     Active Substance: OXYTOCIN
     Indication: Product used for unknown indication
     Dosage: UNK
     Route: 042
  11. NOREPINEPHRINE [Concomitant]
     Active Substance: NOREPINEPHRINE\NOREPINEPHRINE BITARTRATE
     Indication: Product used for unknown indication
     Dosage: UNK
     Route: 042
  12. DOPAMINE [Concomitant]
     Active Substance: DOPAMINE HYDROCHLORIDE
     Indication: Product used for unknown indication
     Dosage: UNK
     Route: 042
  13. NITROGLYCERIN [Concomitant]
     Active Substance: NITROGLYCERIN
     Indication: Product used for unknown indication
     Dosage: UNK
     Route: 065
  14. ALBUMIN HUMAN [Concomitant]
     Active Substance: ALBUMIN HUMAN
     Indication: Product used for unknown indication
     Dosage: UNK
     Route: 065

REACTIONS (5)
  - Pneumonia [Recovered/Resolved]
  - Respiratory depression [Recovered/Resolved]
  - Loss of consciousness [Recovered/Resolved]
  - Hypercapnia [Recovered/Resolved]
  - Drug interaction [Recovered/Resolved]

NARRATIVE: CASE EVENT DATE: 20230704
